FAERS Safety Report 24545467 (Version 1)
Quarter: 2024Q4

REPORT INFORMATION
  Report Type: Spontaneous
  Country: US (occurrence: US)
  Receive Date: 20241024
  Receipt Date: 20241024
  Transmission Date: 20250114
  Serious: Yes (Hospitalization, Other)
  Sender: SANDOZ
  Company Number: US-NOVPHSZ-PHHY2018US019437

PATIENT
  Age: 76 Year
  Sex: Male

DRUGS (2)
  1. MYCOPHENOLATE MOFETIL [Suspect]
     Active Substance: MYCOPHENOLATE MOFETIL
     Indication: Renal transplant
     Dosage: UNK
     Route: 065
  2. TACROLIMUS [Suspect]
     Active Substance: TACROLIMUS
     Indication: Renal transplant
     Dosage: UNK
     Route: 065

REACTIONS (13)
  - Pseudomonas infection [Unknown]
  - Staphylococcal infection [Unknown]
  - Anaplastic large cell lymphoma T- and null-cell types [Unknown]
  - Swelling face [Unknown]
  - Skin lesion [Not Recovered/Not Resolved]
  - Pyrexia [Unknown]
  - Secretion discharge [Unknown]
  - Pain [Unknown]
  - Scab [Unknown]
  - Papule [Unknown]
  - Skin burning sensation [Unknown]
  - Pruritus [Unknown]
  - Depressed mood [Unknown]
